FAERS Safety Report 12579650 (Version 4)
Quarter: 2017Q2

REPORT INFORMATION
  Report Type: Spontaneous
  Country: AT (occurrence: AT)
  Receive Date: 20160721
  Receipt Date: 20170427
  Transmission Date: 20170830
  Serious: Yes (Hospitalization)
  Sender: FDA-Public Use
  Company Number: AT-ELI_LILLY_AND_COMPANY-AT201607005135

PATIENT
  Age: 78 Year
  Sex: Male
  Weight: 50 kg

DRUGS (7)
  1. CIALIS [Suspect]
     Active Substance: TADALAFIL
     Indication: PROSTATOMEGALY
     Dosage: 2.5 MG, EVERY THREE DAYS
     Route: 065
  2. CIALIS [Suspect]
     Active Substance: TADALAFIL
     Indication: POST PROCEDURAL COMPLICATION
     Dosage: 5 MG, QD
     Route: 065
  3. CIALIS [Suspect]
     Active Substance: TADALAFIL
     Indication: ERECTILE DYSFUNCTION
     Dosage: 5 MG, 2/W
     Route: 065
  4. CORTISONE [Concomitant]
     Active Substance: CORTISONE\HYDROCORTISONE
     Dosage: UNK, UNKNOWN
     Route: 065
  5. CIALIS [Suspect]
     Active Substance: TADALAFIL
     Dosage: 5 MG, EVERY FIVE DAYS
     Route: 065
  6. CIALIS [Suspect]
     Active Substance: TADALAFIL
     Dosage: 20 MG, UNKNOWN
     Route: 065
  7. CIALIS [Suspect]
     Active Substance: TADALAFIL
     Indication: MICTURITION DISORDER
     Dosage: 5 MG, WEEKLY (1/W)
     Route: 065

REACTIONS (13)
  - Drug ineffective [Not Recovered/Not Resolved]
  - Off label use [Unknown]
  - Blindness [Unknown]
  - Dizziness [Unknown]
  - Gastrooesophageal reflux disease [Not Recovered/Not Resolved]
  - Candida infection [Unknown]
  - Visual impairment [Recovered/Resolved]
  - Swelling face [Recovered/Resolved]
  - Malaise [Unknown]
  - Hypersensitivity [Recovered/Resolved]
  - Inappropriate schedule of drug administration [Unknown]
  - Haemorrhage [Unknown]
  - Headache [Unknown]
